FAERS Safety Report 5662772-8 (Version None)
Quarter: 2008Q1

REPORT INFORMATION
  Report Type: 
  Country: None (occurrence: None)
  Receive Date: 20080221
  Receipt Date: 20070802
  Transmission Date: 20080703
  Serious: Yes (Other)
  Sender: FDA-Public Use
  Company Number: PHEH2007US03791

PATIENT
  Sex: Female

DRUGS (2)
  1. DIOVAN [Suspect]
     Indication: HYPERTENSION
     Dosage: QD
  2. ANTI-DIABETICS(NO INGREDIENTS/SUBSTANCES) [Suspect]
     Indication: DIABETES MELLITUS
     Dosage: ORAL
     Route: 048

REACTIONS (4)
  - ANGIOEDEMA [None]
  - FLUSHING [None]
  - LOCAL SWELLING [None]
  - WHEEZING [None]
